FAERS Safety Report 7383450-3 (Version None)
Quarter: 2011Q1

REPORT INFORMATION
  Report Type: 
  Country: None (occurrence: None)
  Receive Date: 20110330
  Receipt Date: 20110321
  Transmission Date: 20110831
  Serious: Yes (Hospitalization)
  Sender: FDA-Public Use
  Company Number: US-JNJFOC-20110309863

PATIENT
  Sex: Female
  Weight: 68.04 kg

DRUGS (3)
  1. RISPERDAL [Suspect]
     Indication: SCHIZOPHRENIA
     Route: 048
  2. CLONOPIN [Concomitant]
     Indication: ANXIETY
     Route: 048
  3. REMERON [Concomitant]
     Indication: ANTIDEPRESSANT THERAPY
     Dosage: AS NECESSARY
     Route: 048

REACTIONS (3)
  - WEIGHT INCREASED [None]
  - HYPERPHAGIA [None]
  - HOSPITALISATION [None]
